FAERS Safety Report 23368593 (Version 1)
Quarter: 2024Q1

REPORT INFORMATION
  Report Type: Spontaneous
  Country: US (occurrence: US)
  Receive Date: 20240105
  Receipt Date: 20240105
  Transmission Date: 20240409
  Serious: No
  Sender: FDA-Public Use
  Company Number: US-UROGEN PHARMA LTD.-2023-UGN-000086

PATIENT

DRUGS (6)
  1. JELMYTO [Suspect]
     Active Substance: MITOMYCIN
     Indication: Product used for unknown indication
     Dosage: UNK (INSTILLATION), ONCE A WEEK
     Route: 065
     Dates: start: 20230710, end: 20230710
  2. JELMYTO [Suspect]
     Active Substance: MITOMYCIN
     Dosage: UNK (INSTILLATION), ONCE A WEEK
     Route: 065
     Dates: start: 20230717, end: 20230717
  3. JELMYTO [Suspect]
     Active Substance: MITOMYCIN
     Dosage: UNK (INSTILLATION), ONCE A WEEK
     Route: 065
     Dates: start: 20230724, end: 20230724
  4. JELMYTO [Suspect]
     Active Substance: MITOMYCIN
     Dosage: UNK (INSTILLATION), ONCE A WEEK
     Route: 065
     Dates: start: 20230731, end: 20230731
  5. JELMYTO [Suspect]
     Active Substance: MITOMYCIN
     Dosage: UNK (INSTILLATION), ONCE A WEEK
     Route: 065
     Dates: start: 20230807, end: 20230807
  6. JELMYTO [Suspect]
     Active Substance: MITOMYCIN
     Dosage: UNK (INSTILLATION), ONCE A WEEK
     Route: 065
     Dates: start: 20230814, end: 20230814

REACTIONS (1)
  - Haematoma [Unknown]

NARRATIVE: CASE EVENT DATE: 20230101
